FAERS Safety Report 25519970 (Version 1)
Quarter: 2025Q3

REPORT INFORMATION
  Report Type: Spontaneous
  Country: US (occurrence: US)
  Receive Date: 20250704
  Receipt Date: 20250704
  Transmission Date: 20251021
  Serious: No
  Sender: SANOFI AVENTIS
  Company Number: US-SA-2025SA188018

PATIENT
  Sex: Male

DRUGS (10)
  1. DUPIXENT [Suspect]
     Active Substance: DUPILUMAB
     Indication: Dermatitis atopic
     Dosage: 300 MG, QOW
     Route: 058
  2. ATORVASTATIN [Concomitant]
     Active Substance: ATORVASTATIN
  3. CLOBETASOL PROPIONATE [Concomitant]
     Active Substance: CLOBETASOL PROPIONATE
  4. GABAPENTIN [Concomitant]
     Active Substance: GABAPENTIN
  5. JARDIANCE [Concomitant]
     Active Substance: EMPAGLIFLOZIN
  6. KETOCONAZOLE [Concomitant]
     Active Substance: KETOCONAZOLE
  7. LOSARTAN POTASSIUM [Concomitant]
     Active Substance: LOSARTAN POTASSIUM
  8. PANTOPRAZOLE SODIUM [Concomitant]
     Active Substance: PANTOPRAZOLE SODIUM
  9. CALCIUM [Concomitant]
     Active Substance: CALCIUM
  10. IRON [Concomitant]
     Active Substance: IRON

REACTIONS (1)
  - Rash pruritic [Not Recovered/Not Resolved]
